FAERS Safety Report 16256117 (Version 3)
Quarter: 2025Q1

REPORT INFORMATION
  Report Type: Spontaneous
  Country: US (occurrence: US)
  Receive Date: 20190430
  Receipt Date: 20250103
  Transmission Date: 20250409
  Serious: Yes (Life-Threatening, Hospitalization)
  Sender: PFIZER
  Company Number: US-PFIZER INC-2019177019

PATIENT
  Age: 68 Year
  Sex: Female

DRUGS (2)
  1. TRANEXAMIC ACID [Suspect]
     Active Substance: TRANEXAMIC ACID
     Indication: Haemorrhage prophylaxis
     Route: 037
  2. BUPIVACAINE HYDROCHLORIDE [Suspect]
     Active Substance: BUPIVACAINE HYDROCHLORIDE
     Indication: Local anaesthesia

REACTIONS (6)
  - Incorrect route of product administration [Unknown]
  - Wrong product administered [Unknown]
  - Product packaging confusion [Unknown]
  - Myoclonus [Unknown]
  - Seizure [Unknown]
  - Ventricular tachycardia [Unknown]
